FAERS Safety Report 15663763 (Version 1)
Quarter: 2018Q4

REPORT INFORMATION
  Report Type: Spontaneous
  Country: US (occurrence: US)
  Receive Date: 20181128
  Receipt Date: 20181128
  Transmission Date: 20190205
  Serious: Yes (Other)
  Sender: FDA-Public Use
  Company Number: US-STRIDES ARCOLAB LIMITED-2018SP009134

PATIENT
  Age: 15 Year
  Sex: Female

DRUGS (6)
  1. ACETAZOLAMIDE. [Suspect]
     Active Substance: ACETAZOLAMIDE
     Dosage: 125 MG, UNKNOWN
     Route: 048
  2. ACETAZOLAMIDE. [Suspect]
     Active Substance: ACETAZOLAMIDE
     Dosage: 50 MG, UNKNOWN
     Route: 048
  3. ACETAZOLAMIDE. [Suspect]
     Active Substance: ACETAZOLAMIDE
     Dosage: 325 MG, UNKNOWN
     Route: 048
  4. ACETAZOLAMIDE. [Suspect]
     Active Substance: ACETAZOLAMIDE
     Dosage: 500 MG, QID
     Route: 065
  5. ACETAZOLAMIDE. [Suspect]
     Active Substance: ACETAZOLAMIDE
     Indication: IDIOPATHIC INTRACRANIAL HYPERTENSION
     Dosage: 1000 MG, BID, EXTENDED RELEASE
     Route: 048
  6. ACETAZOLAMIDE. [Suspect]
     Active Substance: ACETAZOLAMIDE
     Dosage: UNK, QID, IMMEDIATE RELEASE
     Route: 065

REACTIONS (8)
  - Respiratory distress [Recovered/Resolved]
  - Urticaria [Recovered/Resolved]
  - Off label use [Unknown]
  - Type I hypersensitivity [Recovered/Resolved]
  - Dyspnoea [Recovered/Resolved]
  - Personality change [Recovered/Resolved]
  - Rash [Recovered/Resolved]
  - Hyperhidrosis [Recovered/Resolved]
